FAERS Safety Report 7938585-0 (Version None)
Quarter: 2011Q4

REPORT INFORMATION
  Report Type: 
  Country: None (occurrence: None)
  Receive Date: 20111123
  Receipt Date: 20111117
  Transmission Date: 20120403
  Serious: Yes (Other)
  Sender: FDA-Public Use
  Company Number: US-ALLERGAN-1115182US

PATIENT
  Age: 42 Year
  Sex: Female

DRUGS (1)
  1. BOTOX COSMETIC [Suspect]
     Indication: SKIN WRINKLING
     Dosage: 20 UNITS, SINGLE
     Route: 030
     Dates: start: 20111026, end: 20111026

REACTIONS (6)
  - FATIGUE [None]
  - ANAPHYLACTIC SHOCK [None]
  - NECK PAIN [None]
  - MUSCULAR WEAKNESS [None]
  - HEADACHE [None]
  - DISORIENTATION [None]
